FAERS Safety Report 5525506-3 (Version None)
Quarter: 2007Q4

REPORT INFORMATION
  Report Type: 
  Country: None (occurrence: None)
  Receive Date: 20071126
  Receipt Date: 20071113
  Transmission Date: 20080405
  Serious: Yes (Other)
  Sender: FDA-Public Use
  Company Number: A0678568A

PATIENT
  Sex: Male

DRUGS (1)
  1. PAXIL [Suspect]
     Indication: DRUG USE FOR UNKNOWN INDICATION
     Dates: start: 20040101

REACTIONS (10)
  - DELUSION [None]
  - EMOTIONAL DISORDER [None]
  - FEAR [None]
  - HOMICIDAL IDEATION [None]
  - HOMICIDE [None]
  - LOSS OF CONSCIOUSNESS [None]
  - MANIA [None]
  - MENTAL DISORDER [None]
  - SUICIDE ATTEMPT [None]
  - WITHDRAWAL SYNDROME [None]
